FAERS Safety Report 9815096 (Version 1)
Quarter: 2014Q1

REPORT INFORMATION
  Report Type: Spontaneous
  Country: SE (occurrence: SE)
  Receive Date: 20140114
  Receipt Date: 20140114
  Transmission Date: 20141002
  Serious: Yes (Hospitalization, Other)
  Sender: FDA-Public Use
  Company Number: SE-009507513-1401SWE004356

PATIENT
  Age: 5 Year
  Sex: Male

DRUGS (4)
  1. SINGULAIR [Suspect]
     Indication: HYPERSENSITIVITY
     Route: 048
  2. SINGULAIR [Suspect]
     Indication: ASTHMA
  3. BRICANYL [Concomitant]
  4. PULMICORT [Concomitant]

REACTIONS (3)
  - Cardiac arrest [Recovering/Resolving]
  - Cardiomyopathy [Recovering/Resolving]
  - Cardiac pacemaker insertion [Unknown]
